FAERS Safety Report 4462804-9 (Version None)
Quarter: 2004Q3

REPORT INFORMATION
  Report Type: 
  Country: None (occurrence: None)
  Receive Date: 20040927
  Receipt Date: 20040920
  Transmission Date: 20050211
  Serious: Yes (Other)
  Sender: FDA-Public Use
  Company Number: HQWYE172322SEP04

PATIENT
  Sex: Female

DRUGS (3)
  1. PREMPRO [Suspect]
     Dosage: 0.625MG/2.5MG DAILY, ORAL
     Route: 048
     Dates: start: 19961203, end: 19990901
  2. PREMARIN [Suspect]
     Dates: start: 19930511, end: 19961201
  3. PROVERA [Suspect]
     Dosage: ORAL
     Route: 048
     Dates: start: 19930501, end: 19961201

REACTIONS (5)
  - BREAST CANCER STAGE II [None]
  - METASTASES TO LYMPH NODES [None]
  - NUCLEAR MAGNETIC RESONANCE IMAGING ABNORMAL [None]
  - OESTROGEN RECEPTOR ASSAY POSITIVE [None]
  - PROGESTERONE RECEPTOR ASSAY POSITIVE [None]
